FAERS Safety Report 15190485 (Version 4)
Quarter: 2018Q4

REPORT INFORMATION
  Report Type: Spontaneous
  Country: US (occurrence: US)
  Receive Date: 20180724
  Receipt Date: 20181024
  Transmission Date: 20190204
  Serious: No
  Sender: FDA-Public Use
  Company Number: US-GLAXOSMITHKLINE-US2018130320

PATIENT
  Sex: Female

DRUGS (1)
  1. BENLYSTA [Suspect]
     Active Substance: BELIMUMAB
     Indication: SYSTEMIC LUPUS ERYTHEMATOSUS
     Dosage: 200 MG/ML, WE
     Route: 058
     Dates: start: 20180622

REACTIONS (5)
  - Injection site pain [Unknown]
  - Product complaint [Unknown]
  - Device use error [Unknown]
  - Accidental underdose [Unknown]
  - Accidental exposure to product [Unknown]
